FAERS Safety Report 19230661 (Version 1)
Quarter: 2021Q2

REPORT INFORMATION
  Report Type: Spontaneous
  Country: US (occurrence: US)
  Receive Date: 20210507
  Receipt Date: 20210507
  Transmission Date: 20210717
  Serious: Yes (Life-Threatening, Other)
  Sender: FDA-Public Use
  Company Number: None

PATIENT
  Age: 34 Year
  Sex: Female
  Weight: 52.16 kg

DRUGS (1)
  1. IMPLANON [Suspect]
     Active Substance: ETONOGESTREL
     Dates: start: 20160205, end: 20180925

REACTIONS (10)
  - Dizziness [None]
  - Feeling hot [None]
  - Drug abuse [None]
  - Intentional self-injury [None]
  - Complication associated with device [None]
  - Mental impairment [None]
  - Abortion spontaneous [None]
  - Promiscuity [None]
  - Psychotic disorder [None]
  - Feeling abnormal [None]

NARRATIVE: CASE EVENT DATE: 20160302
